FAERS Safety Report 9661088 (Version 5)
Quarter: 2014Q1

REPORT INFORMATION
  Report Type: Report from Study
  Country: US (occurrence: US)
  Receive Date: 20131031
  Receipt Date: 20140217
  Transmission Date: 20141002
  Serious: Yes (Other)
  Sender: FDA-Public Use
  Company Number: PHEH2013US020310

PATIENT
  Age: 51 Year
  Sex: Male
  Weight: 64.86 kg

DRUGS (5)
  1. GILENYA [Suspect]
     Indication: RELAPSING-REMITTING MULTIPLE SCLEROSIS
     Dosage: 0.5 MG, QD
     Route: 048
     Dates: start: 20130923, end: 20130926
  2. GLUCOPHAGE [Concomitant]
     Indication: DIABETES MELLITUS
     Dosage: 1000 MG, BID
     Route: 048
  3. MOTRIN [Concomitant]
     Indication: MUSCULOSKELETAL PAIN
     Dosage: 200 MG, PRN
     Route: 048
  4. CLARITIN [Concomitant]
     Indication: SEASONAL ALLERGY
  5. ZOCOR [Concomitant]
     Indication: HYPERCHOLESTEROLAEMIA

REACTIONS (8)
  - Drug hypersensitivity [Recovered/Resolved]
  - Angioedema [Unknown]
  - Lip swelling [Recovered/Resolved]
  - Swollen tongue [Recovered/Resolved]
  - Speech disorder [Recovered/Resolved]
  - Pharyngeal oedema [Recovering/Resolving]
  - Oedema mouth [Recovering/Resolving]
  - Wheezing [Recovered/Resolved]
